FAERS Safety Report 21215507 (Version 1)
Quarter: 2022Q3

REPORT INFORMATION
  Report Type: Report from Study
  Country: CA (occurrence: CA)
  Receive Date: 20220816
  Receipt Date: 20220816
  Transmission Date: 20221026
  Serious: Yes (Other)
  Sender: FDA-Public Use
  Company Number: CA-JNJFOC-20220824035

PATIENT
  Sex: Female
  Weight: 78 kg

DRUGS (1)
  1. REMICADE [Suspect]
     Active Substance: INFLIXIMAB
     Indication: Crohn^s disease
     Dosage: STRENGTH: 10 MG
     Route: 041
     Dates: start: 20080421

REACTIONS (3)
  - Lupus-like syndrome [Unknown]
  - Infection [Not Recovered/Not Resolved]
  - Psoriasis [Unknown]
